FAERS Safety Report 18093646 (Version 2)
Quarter: 2020Q4

REPORT INFORMATION
  Report Type: Report from Study
  Country: GB (occurrence: GB)
  Receive Date: 20200730
  Receipt Date: 20201023
  Transmission Date: 20210113
  Serious: Yes (Other)
  Sender: FDA-Public Use
  Company Number: GB-SAMSUNG BIOEPIS-SB-2020-19247

PATIENT
  Sex: Male

DRUGS (3)
  1. IMRALDI [Suspect]
     Active Substance: ADALIMUMAB
     Indication: CROHN^S DISEASE
  2. IMRALDI [Suspect]
     Active Substance: ADALIMUMAB
     Indication: ARTHRITIS ENTEROPATHIC
     Route: 058
  3. IMRALDI [Suspect]
     Active Substance: ADALIMUMAB
     Indication: RHEUMATOID ARTHRITIS

REACTIONS (12)
  - Rheumatoid arthritis [Unknown]
  - Sinus disorder [Unknown]
  - Nasal disorder [Unknown]
  - Therapeutic product effect incomplete [Unknown]
  - Stress [Unknown]
  - Sleep disorder [Unknown]
  - Dyspnoea [Unknown]
  - Product use in unapproved indication [Unknown]
  - Anxiety [Unknown]
  - Tooth infection [Unknown]
  - Headache [Unknown]
  - Therapeutic product effect variable [Unknown]
